FAERS Safety Report 6767294-9 (Version None)
Quarter: 2010Q2

REPORT INFORMATION
  Report Type: 
  Country: None (occurrence: None)
  Receive Date: 20100611
  Receipt Date: 20100611
  Transmission Date: 20101027
  Serious: Yes (Other)
  Sender: FDA-Public Use
  Company Number: None

PATIENT
  Age: 39 Year
  Sex: Female

DRUGS (1)
  1. LOESTRIN FE 1/20 [Suspect]

REACTIONS (11)
  - AMENORRHOEA [None]
  - ANXIETY [None]
  - CHEST DISCOMFORT [None]
  - DIZZINESS [None]
  - FATIGUE [None]
  - FEELING ABNORMAL [None]
  - HEADACHE [None]
  - LOSS OF LIBIDO [None]
  - NAUSEA [None]
  - RHINORRHOEA [None]
  - SNEEZING [None]
